FAERS Safety Report 24041487 (Version 4)
Quarter: 2025Q1

REPORT INFORMATION
  Report Type: Spontaneous
  Country: US (occurrence: US)
  Receive Date: 20240702
  Receipt Date: 20250219
  Transmission Date: 20250408
  Serious: Yes (Other)
  Sender: PFIZER
  Company Number: US-PFIZER INC-202400203779

PATIENT
  Age: 63 Year
  Sex: Male

DRUGS (1)
  1. CIBINQO [Suspect]
     Active Substance: ABROCITINIB
     Indication: Dermatitis atopic
     Dosage: 100 MG ONE TAB PO (ORALLY) QD (ONCE A DAY)
     Route: 048

REACTIONS (6)
  - Acute hepatitis C [Unknown]
  - Staphylococcal scalded skin syndrome [Unknown]
  - Drug ineffective [Unknown]
  - Hepatitis C antibody positive [Unknown]
  - Pruritus [Unknown]
  - Rash erythematous [Unknown]
